FAERS Safety Report 8393150-9 (Version None)
Quarter: 2012Q2

REPORT INFORMATION
  Report Type: 
  Country: None (occurrence: None)
  Receive Date: 20120529
  Receipt Date: 20120501
  Transmission Date: 20120825
  Serious: No
  Sender: FDA-Public Use
  Company Number: US-ABBOTT-12P-163-0932471-00

PATIENT
  Sex: Male
  Weight: 96.248 kg

DRUGS (9)
  1. ANDROGEL [Suspect]
     Indication: BLOOD TESTOSTERONE DECREASED
     Dosage: 2 PUMPS DAILY
     Route: 061
     Dates: start: 20120101, end: 20120426
  2. FISH OIL [Concomitant]
     Indication: PRODUCT USED FOR UNKNOWN INDICATION
     Route: 048
  3. CRESTOR [Concomitant]
     Indication: BLOOD CHOLESTEROL INCREASED
     Route: 048
  4. CENTRUM [Concomitant]
     Indication: PRODUCT USED FOR UNKNOWN INDICATION
  5. ASPIRIN [Concomitant]
     Indication: PRODUCT USED FOR UNKNOWN INDICATION
  6. ALLOPURINOL [Concomitant]
     Indication: GOUT
  7. BLUEBERRY JUICE [Concomitant]
     Indication: NEPHROLITHIASIS
     Route: 048
  8. LEMON JUICE [Concomitant]
     Indication: NEPHROLITHIASIS
     Route: 048
  9. ANDROGEL [Suspect]
     Dosage: 3 PUMPS DAILY
     Route: 061
     Dates: start: 20120426

REACTIONS (2)
  - FATIGUE [None]
  - DRUG INEFFECTIVE [None]
